FAERS Safety Report 6515894-3 (Version None)
Quarter: 2009Q4

REPORT INFORMATION
  Report Type: 
  Country: None (occurrence: None)
  Receive Date: 20091211
  Receipt Date: 20081021
  Transmission Date: 20100525
  Serious: Yes (Other)
  Sender: FDA-Public Use
  Company Number: SPV1-2008-02269

PATIENT
  Age: 5 Year
  Sex: Male
  Weight: 24.5 kg

DRUGS (1)
  1. ADDERALL XR 10 [Suspect]
     Indication: ATTENTION DEFICIT/HYPERACTIVITY DISORDER
     Dosage: MG, 1X/WEEK, ORAL
     Route: 048
     Dates: start: 20040101, end: 20040101

REACTIONS (2)
  - CONVULSION [None]
  - OFF LABEL USE [None]
